FAERS Safety Report 10259025 (Version 2)
Quarter: 2014Q2

REPORT INFORMATION
  Report Type: Spontaneous
  Country: US (occurrence: US)
  Receive Date: 20140625
  Receipt Date: 20140625
  Transmission Date: 20141212
  Serious: No
  Sender: FDA-Public Use
  Company Number: US-ASTELLAS-2013US011181

PATIENT
  Age: 82 Year
  Sex: Female

DRUGS (1)
  1. VESICARE [Suspect]
     Indication: INCONTINENCE
     Route: 065
     Dates: start: 201304

REACTIONS (3)
  - Drug ineffective [Unknown]
  - Nocturia [Unknown]
  - Urinary incontinence [Unknown]
